FAERS Safety Report 7800303-4 (Version None)
Quarter: 2011Q4

REPORT INFORMATION
  Report Type: 
  Country: None (occurrence: None)
  Receive Date: 20111006
  Receipt Date: 20110926
  Transmission Date: 20120403
  Serious: Yes (Hospitalization)
  Sender: FDA-Public Use
  Company Number: AU-GLAXOSMITHKLINE-Z0003743A

PATIENT
  Sex: Female

DRUGS (6)
  1. URAL [Concomitant]
  2. ONDANSETRON [Concomitant]
     Indication: NAUSEA
     Dosage: 4MG SINGLE DOSE
     Route: 048
     Dates: start: 20100328, end: 20100328
  3. AMLODIPINE [Concomitant]
  4. PAZOPANIB [Suspect]
     Indication: OVARIAN CANCER
     Dosage: 800MG PER DAY
     Route: 048
     Dates: start: 20090903
  5. ZOLOFT [Concomitant]
  6. RESPRIM FORTE [Concomitant]
     Indication: PRODUCTIVE COUGH
     Dosage: 1TAB TWICE PER DAY
     Route: 048
     Dates: start: 20100301, end: 20100301

REACTIONS (1)
  - MYALGIA INTERCOSTAL [None]
